FAERS Safety Report 6694967-9 (Version None)
Quarter: 2010Q2

REPORT INFORMATION
  Report Type: 
  Country: None (occurrence: None)
  Receive Date: 20100421
  Receipt Date: 20100406
  Transmission Date: 20101027
  Serious: Yes (Other)
  Sender: FDA-Public Use
  Company Number: IDA-00350

PATIENT
  Sex: Female

DRUGS (1)
  1. PROPRANOLOL [Suspect]
     Dosage: 10 MG, ORAL FORMULATION
     Route: 048

REACTIONS (4)
  - DRUG DISPENSING ERROR [None]
  - HYPOTENSION [None]
  - PRODUCT OUTER PACKAGING ISSUE [None]
  - WRONG DRUG ADMINISTERED [None]
